FAERS Safety Report 9237196 (Version 1)
Quarter: 2013Q2

REPORT INFORMATION
  Report Type: Spontaneous
  Country: IT (occurrence: IT)
  Receive Date: 20130417
  Receipt Date: 20130417
  Transmission Date: 20140414
  Serious: Yes (Other)
  Sender: FDA-Public Use
  Company Number: IT-ABBOTT-13P-083-1075104-00

PATIENT
  Age: 49 Year
  Sex: Female

DRUGS (4)
  1. HUMIRA [Suspect]
     Indication: RHEUMATOID ARTHRITIS
     Route: 058
     Dates: start: 201109
  2. SILIMARINE (LEGALON) [Concomitant]
     Indication: PRODUCT USED FOR UNKNOWN INDICATION
  3. ENAPREN [Concomitant]
     Indication: PRODUCT USED FOR UNKNOWN INDICATION
  4. ACICLIN [Concomitant]
     Indication: PRODUCT USED FOR UNKNOWN INDICATION

REACTIONS (1)
  - Eye haemorrhage [Recovered/Resolved]
